FAERS Safety Report 14680116 (Version 2)
Quarter: 2018Q2

REPORT INFORMATION
  Report Type: Report from Study
  Country: CA (occurrence: CA)
  Receive Date: 20180326
  Receipt Date: 20180426
  Transmission Date: 20180711
  Serious: Yes (Hospitalization)
  Sender: FDA-Public Use
  Company Number: CA-JNJFOC-20171235876

PATIENT
  Sex: Female

DRUGS (2)
  1. STELARA [Suspect]
     Active Substance: USTEKINUMAB
     Indication: CROHN^S DISEASE
     Dosage: STRENGTH = 90 MG
     Route: 058
  2. STELARA [Suspect]
     Active Substance: USTEKINUMAB
     Indication: CROHN^S DISEASE
     Route: 058
     Dates: start: 20180423

REACTIONS (8)
  - Cystitis [Unknown]
  - Skin ulcer [Unknown]
  - Crohn^s disease [Recovering/Resolving]
  - Phlebitis [Unknown]
  - Infection [Recovering/Resolving]
  - Varicose vein [Unknown]
  - Influenza [Unknown]
  - Herpes zoster [Unknown]
